FAERS Safety Report 7995735 (Version 2)
Quarter: 2013Q2

REPORT INFORMATION
  Report Type: Spontaneous
  Country: US (occurrence: US)
  Receive Date: 20110617
  Receipt Date: 20130409
  Transmission Date: 20140414
  Serious: Yes (Other)
  Sender: FDA-Public Use
  Company Number: US-CELGENEUS-163-21880-11060798

PATIENT
  Sex: 0

DRUGS (5)
  1. REVLIMID [Suspect]
     Indication: PLASMA CELL MYELOMA
     Dosage: 25 MILLIGRAM
     Route: 048
  2. DEXAMETHASONE [Suspect]
     Indication: PLASMA CELL MYELOMA
     Dosage: 40 MILLIGRAM
     Route: 048
  3. LORVOTUZUMAB MERTANSINE [Suspect]
     Indication: PLASMA CELL MYELOMA
     Dosage: 75 MILLIGRAM/SQ. METER
     Route: 041
  4. LORVOTUZUMAB MERTANSINE [Suspect]
     Dosage: 90 MILLIGRAM/SQ. METER
     Route: 041
  5. LORVOTUZUMAB MERTANSINE [Suspect]
     Dosage: 112 MILLIGRAM/SQ. METER
     Route: 041

REACTIONS (9)
  - Toxicity to various agents [Unknown]
  - Haemolytic anaemia [Unknown]
  - Blood lactate dehydrogenase increased [Unknown]
  - Hyperuricaemia [Unknown]
  - Tumour lysis syndrome [Unknown]
  - Neutropenia [Unknown]
  - Neuropathy peripheral [Unknown]
  - Thrombocytopenia [Unknown]
  - Anaemia [Unknown]
